FAERS Safety Report 14066209 (Version 1)
Quarter: 2017Q4

REPORT INFORMATION
  Report Type: Spontaneous
  Country: CA (occurrence: CA)
  Receive Date: 20171009
  Receipt Date: 20171009
  Transmission Date: 20180321
  Serious: Yes (Other)
  Sender: FDA-Public Use
  Company Number: CA-AMGEN-CANSP2017148070

PATIENT
  Sex: Female

DRUGS (3)
  1. ORENCIA [Suspect]
     Active Substance: ABATACEPT
     Indication: RHEUMATOID ARTHRITIS
     Dosage: UNK
     Route: 065
     Dates: end: 201701
  2. ENBREL [Suspect]
     Active Substance: ETANERCEPT
     Indication: RHEUMATOID ARTHRITIS
     Dosage: UNK
     Route: 065
  3. METHOTREXATE. [Suspect]
     Active Substance: METHOTREXATE
     Indication: RHEUMATOID ARTHRITIS
     Dosage: UNK
     Route: 065
     Dates: end: 201704

REACTIONS (8)
  - Renal cancer stage III [Recovered/Resolved]
  - Sinus disorder [Unknown]
  - Musculoskeletal disorder [Not Recovered/Not Resolved]
  - Lung disorder [Unknown]
  - Joint warmth [Not Recovered/Not Resolved]
  - Upper respiratory tract infection [Unknown]
  - Joint swelling [Not Recovered/Not Resolved]
  - Sinusitis [Unknown]
